FAERS Safety Report 18899460 (Version 1)
Quarter: 2021Q1

REPORT INFORMATION
  Report Type: Spontaneous
  Country: US (occurrence: US)
  Receive Date: 20210216
  Receipt Date: 20210216
  Transmission Date: 20210420
  Serious: No
  Sender: FDA-Public Use
  Company Number: US-CURIUM-1993000057

PATIENT
  Age: 45 Year
  Sex: Female

DRUGS (1)
  1. ULTRATAG RBC [Suspect]
     Active Substance: TECHNETIUM TC-99M RED BLOOD CELLS

REACTIONS (3)
  - Pain in extremity [Unknown]
  - Extravasation [Unknown]
  - Peripheral swelling [Unknown]

NARRATIVE: CASE EVENT DATE: 19930126
